FAERS Safety Report 4492521-0 (Version None)
Quarter: 2004Q4

REPORT INFORMATION
  Report Type: 
  Country: None (occurrence: None)
  Receive Date: 20041102
  Receipt Date: 20041102
  Transmission Date: 20050328
  Serious: No
  Sender: FDA-Public Use
  Company Number: None

PATIENT
  Age: 82 Year
  Sex: Female
  Weight: 34.4734 kg

DRUGS (18)
  1. ZYVOX [Suspect]
     Indication: STAPHYLOCOCCAL INFECTION
     Dosage: 600 MG Q12 H IV
     Route: 042
     Dates: start: 20041011, end: 20041019
  2. PAXIL [Suspect]
     Indication: DEPRESSION
     Dosage: 20 MG Q24 H ORAL
     Route: 048
     Dates: start: 20041018, end: 20041019
  3. APAP TAB [Concomitant]
  4. AMIODARONE HCL [Concomitant]
  5. AMITRIPTYLINE [Concomitant]
  6. ASPIRIN [Concomitant]
  7. ATORVASTATIN CALCIUM [Concomitant]
  8. DEXAMETHASONE [Concomitant]
  9. DOCUSATE CALCIUM [Concomitant]
  10. ENOXAPARIN [Concomitant]
  11. FAMOTADINE [Concomitant]
  12. FUROSEMIDE [Concomitant]
  13. INSULINE GLARINE [Concomitant]
  14. ISNULIN LISPRO [Concomitant]
  15. NESIRITIDE [Concomitant]
  16. POTASSIUM CHLORIDE [Concomitant]
  17. LEVAQUIN [Concomitant]
  18. ZOSYN [Concomitant]

REACTIONS (1)
  - SEROTONIN SYNDROME [None]
